FAERS Safety Report 5177599-3 (Version None)
Quarter: 2006Q4

REPORT INFORMATION
  Report Type: 
  Country: None (occurrence: None)
  Receive Date: 20061207
  Receipt Date: 20061127
  Transmission Date: 20070319
  Serious: Yes (Other)
  Sender: FDA-Public Use
  Company Number: 2006094963

PATIENT
  Age: 23 Year
  Sex: Female

DRUGS (2)
  1. AZULFIDINE [Suspect]
     Indication: RHEUMATOID ARTHRITIS
     Dosage: 1 GRAM (500 MG, 2 IN 1 D), ORAL
     Route: 048
     Dates: start: 20030101, end: 20060505
  2. NAPROXEN [Concomitant]

REACTIONS (5)
  - EYE INFLAMMATION [None]
  - HERPES SIMPLEX [None]
  - JAUNDICE CHOLESTATIC [None]
  - STOMATITIS [None]
  - WEIGHT DECREASED [None]
